FAERS Safety Report 10236316 (Version 1)
Quarter: 2014Q1

REPORT INFORMATION
  Report Type: Spontaneous
  Country: US (occurrence: None)
  Receive Date: 20140306
  Receipt Date: 20140306
  Transmission Date: 20141002
  Serious: Yes (Other)
  Sender: FDA-Public Use
  Company Number: 163-21880-13022924

PATIENT
  Age: 69 Year
  Sex: Female
  Weight: 56.7 kg

DRUGS (8)
  1. REVLIMID [Suspect]
     Indication: MYELODYSPLASTIC SYNDROME
     Route: 048
     Dates: start: 20121211, end: 201302
  2. LEVOTHYROXINE(LEVOTHYROXINE)(UKNOWN) [Concomitant]
  3. ARMOUR THYROID(THYROID)(UKNOWN) [Concomitant]
  4. D3+ K2 DOTS(VITAMINS)(UKNOWN) [Concomitant]
  5. VITAMIN B COMPLEX (B-KOMPLEX^LECIVA)(UKNOWN) [Concomitant]
  6. VITAMIN B 12 (CYANOCOBALAMIN)(UKNOWN) [Concomitant]
  7. TRAMADOL(TRAMADOL)(UKNOWN) [Concomitant]
  8. VICODIN(VICODIN)(UKNOWN) [Concomitant]

REACTIONS (4)
  - Splenomegaly [None]
  - Rash generalised [None]
  - Musculoskeletal chest pain [None]
  - Anaemia [None]
